FAERS Safety Report 7092701-4 (Version None)
Quarter: 2010Q4

REPORT INFORMATION
  Report Type: 
  Country: None (occurrence: None)
  Receive Date: 20101109
  Receipt Date: 20101109
  Transmission Date: 20110411
  Serious: No
  Sender: FDA-Public Use
  Company Number: None

PATIENT
  Sex: Female
  Weight: 98.4306 kg

DRUGS (2)
  1. SIMPONI AUTOINJECTOR 50 MG CENTOCOR SIMPONI [Suspect]
     Indication: RHEUMATOID ARTHRITIS
     Dosage: 50 MG Q 1 WK SQ
  2. HUMIRA [Concomitant]

REACTIONS (1)
  - SKIN ULCER [None]
